FAERS Safety Report 20126248 (Version 1)
Quarter: 2021Q4

REPORT INFORMATION
  Report Type: Spontaneous
  Country: DE (occurrence: DE)
  Receive Date: 20211129
  Receipt Date: 20211129
  Transmission Date: 20220303
  Serious: Yes (Other)
  Sender: FDA-Public Use
  Company Number: DE-002147023-NVSC2021DE213449

PATIENT
  Sex: Female

DRUGS (3)
  1. TAMOXIFEN [Suspect]
     Active Substance: TAMOXIFEN
     Indication: HER2 positive breast cancer
     Dosage: UNK
     Route: 065
  2. TAMOXIFEN [Suspect]
     Active Substance: TAMOXIFEN
     Indication: Breast cancer
  3. TAMOXIFEN [Suspect]
     Active Substance: TAMOXIFEN
     Indication: Intraductal proliferative breast lesion

REACTIONS (2)
  - Neoplasm recurrence [Unknown]
  - HER2 positive breast cancer [Unknown]

NARRATIVE: CASE EVENT DATE: 20110101
